FAERS Safety Report 20868177 (Version 2)
Quarter: 2022Q2

REPORT INFORMATION
  Report Type: Spontaneous
  Country: CN (occurrence: CN)
  Receive Date: 20220524
  Receipt Date: 20220525
  Transmission Date: 20220721
  Serious: No
  Sender: FDA-Public Use
  Company Number: CN-NOVARTISPH-NVSC2022CN118432

PATIENT
  Age: 19 Year
  Sex: Female
  Weight: 30 kg

DRUGS (5)
  1. TRILEPTAL [Suspect]
     Active Substance: OXCARBAZEPINE
     Indication: Epilepsy
     Dosage: 0.75 G, QD, (0.3 IN THE MORNING AND 0.45 IN THE EVENING)
     Route: 048
     Dates: start: 20150601, end: 20210127
  2. TRILEPTAL [Suspect]
     Active Substance: OXCARBAZEPINE
     Dosage: 0.3 G, QD
     Route: 048
  3. TIGECYCLINE [Concomitant]
     Active Substance: TIGECYCLINE
     Indication: Pneumonia
     Dosage: 2 MG, BID
     Route: 042
     Dates: start: 20210119, end: 20210202
  4. CLONAZEPAM [Concomitant]
     Active Substance: CLONAZEPAM
     Indication: Epilepsy
     Dosage: 1 MG, Q12H
     Route: 048
     Dates: start: 2015
  5. MIDAZOLAM [Concomitant]
     Active Substance: MIDAZOLAM
     Indication: Product used for unknown indication
     Dosage: UNK
     Route: 065

REACTIONS (1)
  - Hyponatraemia [Recovering/Resolving]

NARRATIVE: CASE EVENT DATE: 20210121
